FAERS Safety Report 6064884-6 (Version None)
Quarter: 2009Q1

REPORT INFORMATION
  Report Type: 
  Country: None (occurrence: None)
  Receive Date: 20090203
  Receipt Date: 20090203
  Transmission Date: 20090719
  Serious: Yes (Life-Threatening)
  Sender: FDA-Public Use
  Company Number: None

PATIENT
  Age: 66 Year
  Sex: Male
  Weight: 74.3899 kg

DRUGS (4)
  1. ASMANEX TWISTHALER [Suspect]
     Indication: ASTHMA
     Dosage: 1 TWIST BID OR TID OROPHARINGEAL
     Route: 049
  2. INTAL [Concomitant]
  3. ADVAIR DISKUS 100/50 [Concomitant]
  4. THEOPHYLLINE [Concomitant]

REACTIONS (4)
  - ASPERGILLOSIS [None]
  - POOR QUALITY DRUG ADMINISTERED [None]
  - PRODUCT CONTAMINATION [None]
  - PRODUCT QUALITY ISSUE [None]
